FAERS Safety Report 7990832 (Version 5)
Quarter: 2013Q3

REPORT INFORMATION
  Report Type: Report from Study
  Country: ZW (occurrence: ZW)
  Receive Date: 20110614
  Receipt Date: 20130802
  Transmission Date: 20140515
  Serious: Yes (Life-Threatening, Hospitalization, Other)
  Sender: FDA-Public Use
  Company Number: ZW-ABBOTT-11P-190-0731514-00

PATIENT
  Age: 39 Year
  Sex: Male

DRUGS (8)
  1. ALUVIA TABLETS [Suspect]
     Indication: HIV INFECTION
     Dosage: 400/100 MG
     Route: 048
     Dates: start: 20110317
  2. TENOLAM [Concomitant]
     Indication: PRODUCT USED FOR UNKNOWN INDICATION
     Dates: start: 20110317, end: 20110515
  3. COTRIMOXAZOLE [Concomitant]
     Indication: PRODUCT USED FOR UNKNOWN INDICATION
     Dates: start: 20020615
  4. FLUCONAZOLE [Concomitant]
     Indication: PRODUCT USED FOR UNKNOWN INDICATION
     Dates: start: 20100915
  5. ABACAVIR [Concomitant]
     Indication: HIV INFECTION
     Dates: start: 20110609
  6. DIDANOSINE [Concomitant]
     Indication: HIV INFECTION
     Dates: start: 20110609
  7. TENOFOVIR [Concomitant]
     Indication: HIV INFECTION
     Dates: start: 20110317, end: 20110517
  8. LAMIVUDINE [Concomitant]
     Indication: HIV INFECTION
     Dates: start: 20110317, end: 20110517

REACTIONS (10)
  - Lymphadenitis [Unknown]
  - Hilar lymphadenopathy [Unknown]
  - Renal failure acute [Recovered/Resolved]
  - Extrapulmonary tuberculosis [Unknown]
  - Pallor [Unknown]
  - Jaundice [Unknown]
  - Pyrexia [Unknown]
  - Chills [Unknown]
  - Headache [Recovered/Resolved]
  - Pulmonary tuberculosis [Recovered/Resolved]
